FAERS Safety Report 17048380 (Version 3)
Quarter: 2020Q1

REPORT INFORMATION
  Report Type: Spontaneous
  Country: US (occurrence: US)
  Receive Date: 20191119
  Receipt Date: 20200212
  Transmission Date: 20200409
  Serious: No
  Sender: FDA-Public Use
  Company Number: US-PFIZER INC-2019497757

PATIENT
  Age: 65 Year
  Sex: Female
  Weight: 49 kg

DRUGS (1)
  1. PREMARIN [Suspect]
     Active Substance: ESTROGENS, CONJUGATED
     Indication: HORMONE REPLACEMENT THERAPY
     Dosage: UNK, 1X/DAY (0.625)
     Dates: start: 2000

REACTIONS (5)
  - Hot flush [Unknown]
  - Headache [Unknown]
  - Insomnia [Unknown]
  - Disturbance in attention [Unknown]
  - Nasopharyngitis [Recovered/Resolved]
